FAERS Safety Report 9218340 (Version 2)
Quarter: 2014Q2

REPORT INFORMATION
  Report Type: Spontaneous
  Country: US (occurrence: US)
  Receive Date: 20130409
  Receipt Date: 20140623
  Transmission Date: 20141212
  Serious: No
  Sender: FDA-Public Use
  Company Number: US-BIOGENIDEC-2013BI029767

PATIENT
  Sex: Female

DRUGS (1)
  1. AVONEX [Suspect]
     Indication: MULTIPLE SCLEROSIS
     Route: 030

REACTIONS (5)
  - Mobility decreased [Not Recovered/Not Resolved]
  - Central nervous system lesion [Unknown]
  - Sluggishness [Recovered/Resolved]
  - Paralysis [Not Recovered/Not Resolved]
  - Hypersensitivity [Unknown]
